FAERS Safety Report 14595299 (Version 1)
Quarter: 2018Q1

REPORT INFORMATION
  Report Type: Spontaneous
  Country: US (occurrence: US)
  Receive Date: 20180302
  Receipt Date: 20180302
  Transmission Date: 20180509
  Serious: No
  Sender: FDA-Public Use
  Company Number: US-AKORN PHARMACEUTICALS-2017AKN01467

PATIENT
  Sex: Female

DRUGS (2)
  1. MYORISAN [Suspect]
     Active Substance: ISOTRETINOIN
     Dosage: 80 MG, UNK
     Dates: start: 201709, end: 20171113
  2. MYORISAN [Suspect]
     Active Substance: ISOTRETINOIN
     Indication: ACNE
     Dosage: 40 MG, UNK
     Dates: start: 20170815, end: 201709

REACTIONS (3)
  - Fatigue [Unknown]
  - Papule [Unknown]
  - Acne [Unknown]

NARRATIVE: CASE EVENT DATE: 2017
